FAERS Safety Report 5847487-5 (Version None)
Quarter: 2008Q3

REPORT INFORMATION
  Report Type: 
  Country: None (occurrence: None)
  Receive Date: 20080814
  Receipt Date: 20080801
  Transmission Date: 20090109
  Serious: Yes (Other)
  Sender: FDA-Public Use
  Company Number: US024276

PATIENT
  Age: 26 Year
  Sex: Female

DRUGS (2)
  1. PROVIGIL [Suspect]
     Indication: NARCOLEPSY
     Dosage: TID ORAL
     Route: 048
     Dates: start: 20070201, end: 20080723
  2. PRENATAL VITAMINS /01549301/ [Concomitant]

REACTIONS (2)
  - BLIGHTED OVUM [None]
  - DRUG EXPOSURE DURING PREGNANCY [None]
